FAERS Safety Report 9933649 (Version 2)
Quarter: 2014Q1

REPORT INFORMATION
  Report Type: Report from Study
  Country: US (occurrence: US)
  Receive Date: 20140228
  Receipt Date: 20140228
  Transmission Date: 20141002
  Serious: No
  Sender: FDA-Public Use
  Company Number: US-MYLANLABS-2013S1027931

PATIENT
  Age: 16 Year
  Sex: Female
  Weight: 62.6 kg

DRUGS (6)
  1. AMNESTEEM CAPSULES [Suspect]
     Indication: ACNE
     Route: 048
     Dates: start: 20130724, end: 20131209
  2. MUPIROCIN [Concomitant]
     Dosage: 2% APPLY TO INSIDE OF NOSE THREE TIMES DAILY FOR 5 DAYS
     Dates: start: 20130410
  3. OCELLA [Concomitant]
     Route: 048
     Dates: start: 20130228
  4. PROVENTIL [Concomitant]
     Dosage: 2 PUFFS EVERY 4-6HOURS AS NEEDED
     Route: 055
     Dates: start: 20130225
  5. SULFACETAMIDE [Concomitant]
     Dosage: 10-15% WASH AFFECTED AREAS BID FOR 20 SECONDS
     Dates: start: 20110525
  6. TAZORAC [Concomitant]
     Dates: start: 20130228

REACTIONS (1)
  - Back pain [Not Recovered/Not Resolved]
